FAERS Safety Report 12881550 (Version 2)
Quarter: 2017Q1

REPORT INFORMATION
  Report Type: Spontaneous
  Country: US (occurrence: US)
  Receive Date: 20161025
  Receipt Date: 20170116
  Transmission Date: 20170428
  Serious: No
  Sender: FDA-Public Use
  Company Number: US-JNJFOC-20161005690

PATIENT
  Sex: Male
  Weight: 127.01 kg

DRUGS (1)
  1. RISPERDAL [Suspect]
     Active Substance: RISPERIDONE
     Indication: HALLUCINATION, AUDITORY
     Dosage: STARTED IN 1990^S
     Route: 048
     Dates: end: 2008

REACTIONS (3)
  - Imprisonment [Unknown]
  - Treatment noncompliance [Unknown]
  - Drug ineffective [Unknown]
